FAERS Safety Report 16893664 (Version 3)
Quarter: 2023Q2

REPORT INFORMATION
  Report Type: Spontaneous
  Country: ES (occurrence: ES)
  Receive Date: 20191008
  Receipt Date: 20230403
  Transmission Date: 20230721
  Serious: Yes (Hospitalization)
  Sender: FDA-Public Use
  Company Number: None

PATIENT
  Age: 57 Year
  Sex: Female

DRUGS (4)
  1. DOXORUBICIN HYDROCHLORIDE [Suspect]
     Active Substance: DOXORUBICIN HYDROCHLORIDE
     Indication: B-cell lymphoma
     Dosage: 81 MG, EVERY 3 WEEKS (EVERY 21 DAYS)
     Route: 042
     Dates: start: 20190814, end: 20190914
  2. VINCRISTINE SULFATE [Suspect]
     Active Substance: VINCRISTINE SULFATE
     Indication: B-cell lymphoma
     Dosage: 2 MG, EVERY 3 WEEKS (EVERY 21 DAYS)
     Route: 042
     Dates: start: 20190814, end: 20190814
  3. CYCLOPHOSPHAMIDE [Suspect]
     Active Substance: CYCLOPHOSPHAMIDE
     Indication: B-cell lymphoma
     Dosage: 1200 MG, EVERY 3 WEEKS (EVERY 21 DAYS)
     Route: 042
     Dates: start: 20190814, end: 20190814
  4. RITUXIMAB [Suspect]
     Active Substance: RITUXIMAB
     Indication: B-cell lymphoma
     Dosage: 610 MG, EVERY 3 WEEKS (EVERY 21 DAYS)
     Route: 042
     Dates: start: 20190814, end: 20190814

REACTIONS (2)
  - Mucosal inflammation [Recovered/Resolved]
  - Pancytopenia [Recovering/Resolving]

NARRATIVE: CASE EVENT DATE: 20190824
